FAERS Safety Report 7259564-5 (Version None)
Quarter: 2011Q1

REPORT INFORMATION
  Report Type: 
  Country: None (occurrence: None)
  Receive Date: 20110130
  Receipt Date: 20101216
  Transmission Date: 20110831
  Serious: No
  Sender: FDA-Public Use
  Company Number: US-ABBOTT-09P-163-0569771-00

PATIENT
  Sex: Female
  Weight: 116.22 kg

DRUGS (9)
  1. HUMIRA [Suspect]
     Route: 058
     Dates: start: 20090505
  2. HUMIRA [Suspect]
     Indication: RHEUMATOID ARTHRITIS
     Dosage: 20 MG EVERY WEEK
     Dates: start: 20090505
  3. VERAPAMIL [Concomitant]
     Indication: HYPERTENSION
  4. ALLEGRA [Concomitant]
     Indication: HYPERSENSITIVITY
  5. HUMIRA [Suspect]
     Route: 058
     Dates: start: 20070501
  6. POTASSIUM [Concomitant]
     Indication: HYPOKALAEMIA
  7. HUMIRA [Suspect]
     Indication: RHEUMATOID ARTHRITIS
     Route: 058
     Dates: start: 20050101, end: 20070101
  8. SYNTHROID [Concomitant]
     Indication: HYPOTHYROIDISM
  9. TOPROL-XL [Concomitant]
     Indication: HYPERTENSION

REACTIONS (12)
  - PAIN [None]
  - INCORRECT DOSE ADMINISTERED [None]
  - INFLAMMATION [None]
  - INFLUENZA [None]
  - VOMITING [None]
  - DEHYDRATION [None]
  - RHEUMATOID ARTHRITIS [None]
  - OEDEMA PERIPHERAL [None]
  - GRIP STRENGTH DECREASED [None]
  - DIARRHOEA [None]
  - INJECTION SITE PAIN [None]
  - BLOOD POTASSIUM DECREASED [None]
